FAERS Safety Report 5302066-3 (Version None)
Quarter: 2007Q2

REPORT INFORMATION
  Report Type: 
  Country: None (occurrence: None)
  Receive Date: 20070419
  Receipt Date: 20070418
  Transmission Date: 20071010
  Serious: Yes (Death)
  Sender: FDA-Public Use
  Company Number: GB-BRISTOL-MYERS SQUIBB COMPANY-13665104

PATIENT
  Age: 39 Year
  Sex: Male
  Weight: 81 kg

DRUGS (22)
  1. BLEOMYCIN [Suspect]
     Indication: TESTIS CANCER
     Dates: start: 20060815, end: 20060909
  2. CALCICHEW D3 [Concomitant]
     Dates: start: 20061123, end: 20061124
  3. CARBOPLATIN [Concomitant]
     Dates: start: 20060905, end: 20060908
  4. CHLORHEXIDINE GLUCONATE [Concomitant]
     Dates: start: 20061123, end: 20061124
  5. CIPROFLOXACIN [Concomitant]
  6. CISPLATIN [Concomitant]
  7. CLARITHROMYCIN [Concomitant]
     Dates: start: 20061123, end: 20061124
  8. CODEINE [Concomitant]
     Dates: start: 20061103, end: 20061124
  9. CYCLIZINE HCL [Concomitant]
     Dates: start: 20060908, end: 20060911
  10. DEXAMETHASONE 0.5MG TAB [Concomitant]
  11. EPREX [Concomitant]
  12. ETOPOSIDE [Concomitant]
  13. FILGRASTIM [Concomitant]
  14. LANSOPRAZOLE [Concomitant]
     Dates: start: 20060908, end: 20061124
  15. MAGNESIUM GLYCEROPHOSPHATE [Concomitant]
     Dates: start: 20061116, end: 20061122
  16. METOCLOPRAMIDE [Concomitant]
  17. POTASSIUM CHLORIDE [Concomitant]
     Dates: start: 20061123, end: 20061124
  18. PREDNISOLONE [Concomitant]
  19. TEMAZEPAM [Concomitant]
     Dates: start: 20060908, end: 20060915
  20. TINZAPARIN [Concomitant]
     Dates: start: 20061027, end: 20061124
  21. VINCRISTINE [Concomitant]
     Dates: start: 20060905, end: 20060905
  22. WARFARIN SODIUM [Concomitant]
     Dates: start: 20060101, end: 20061124

REACTIONS (2)
  - DEEP VEIN THROMBOSIS [None]
  - PULMONARY EMBOLISM [None]
